FAERS Safety Report 16456125 (Version 1)
Quarter: 2019Q2

REPORT INFORMATION
  Report Type: Spontaneous
  Country: GB (occurrence: GB)
  Receive Date: 20190620
  Receipt Date: 20190620
  Transmission Date: 20190711
  Serious: Yes (Other)
  Sender: FDA-Public Use
  Company Number: GB-BAUSCH-BL-2019-016599

PATIENT
  Age: 53 Year
  Sex: Female

DRUGS (11)
  1. VELCADE [Suspect]
     Active Substance: BORTEZOMIB
     Dosage: VTD; 4 CYCLICAL
     Route: 065
  2. DEXAMETHASONE. [Suspect]
     Active Substance: DEXAMETHASONE
     Indication: AMYLOIDOSIS
     Dosage: CVD, 2-WEEK CHEMOTHERAPEUTIC REGIMEN COMPRISED OF DEXAMETHASONE (10 X 2 MG DAYS 1, 4, 8, AND 11)
     Route: 065
     Dates: start: 201410
  3. VELCADE [Suspect]
     Active Substance: BORTEZOMIB
     Indication: AMYLOIDOSIS
     Dosage: 1 MG/M2 DAYS 1, 4, 8, AND 11; 3 CYCLES
     Route: 065
     Dates: start: 201410
  4. DEXAMETHASONE. [Suspect]
     Active Substance: DEXAMETHASONE
     Route: 065
     Dates: start: 201505
  5. RAMIPRIL. [Suspect]
     Active Substance: RAMIPRIL
     Indication: AMYLOIDOSIS
     Route: 065
     Dates: start: 201409
  6. CYCLOPHOSPHAMIDE. [Suspect]
     Active Substance: CYCLOPHOSPHAMIDE
     Indication: AMYLOIDOSIS
     Dosage: 10 X 50 MG; 3 CYCLES
     Route: 065
     Dates: start: 201410
  7. SPIRONOLACTONE. [Concomitant]
     Active Substance: SPIRONOLACTONE
     Indication: AMYLOIDOSIS
     Dates: start: 201409
  8. LENALIDOMIDE [Suspect]
     Active Substance: LENALIDOMIDE
     Indication: AMYLOIDOSIS
     Route: 065
     Dates: start: 201505
  9. DEXAMETHASONE. [Suspect]
     Active Substance: DEXAMETHASONE
     Indication: AMYLOIDOSIS
     Dosage: VTD; 4 CYCLICAL
     Route: 065
  10. THALIDOMIDE [Suspect]
     Active Substance: THALIDOMIDE
     Indication: AMYLOIDOSIS
     Dosage: 4 CYCLICAL
     Route: 065
  11. BISOPROLOL [Concomitant]
     Active Substance: BISOPROLOL
     Indication: PRODUCT USED FOR UNKNOWN INDICATION
     Dates: start: 2014

REACTIONS (3)
  - Renal impairment [Recovered/Resolved]
  - Diarrhoea [Unknown]
  - Vomiting [Unknown]
